FAERS Safety Report 18022835 (Version 1)
Quarter: 2020Q3

REPORT INFORMATION
  Report Type: Spontaneous
  Country: US (occurrence: US)
  Receive Date: 20200714
  Receipt Date: 20200714
  Transmission Date: 20201103
  Serious: No
  Sender: FDA-Public Use
  Company Number: US-ASTRAZENECA-2020SE80059

PATIENT
  Sex: Female
  Weight: 72.6 kg

DRUGS (1)
  1. FASENRA [Suspect]
     Active Substance: BENRALIZUMAB
     Indication: ASTHMA
     Dosage: UNK,EVERY EIGHT WEEKS
     Route: 058
     Dates: start: 201901

REACTIONS (3)
  - Headache [Recovered/Resolved]
  - Arthralgia [Unknown]
  - Pharyngitis [Recovered/Resolved]
